FAERS Safety Report 18704116 (Version 5)
Quarter: 2022Q4

REPORT INFORMATION
  Report Type: Spontaneous
  Country: IN (occurrence: IN)
  Receive Date: 20210105
  Receipt Date: 20221014
  Transmission Date: 20230112
  Serious: Yes (Other)
  Sender: FDA-Public Use
  Company Number: IN-PFIZER INC-2020414801

PATIENT
  Age: 63 Year
  Sex: Female

DRUGS (4)
  1. PALBOCICLIB [Suspect]
     Active Substance: PALBOCICLIB
     Indication: Breast cancer metastatic
     Dosage: 125 MG, 1X/DAY
     Route: 048
     Dates: start: 20180926
  2. PALBOCICLIB [Suspect]
     Active Substance: PALBOCICLIB
     Dosage: 100 MG 1X/DAY
     Route: 048
     Dates: start: 20200814
  3. PALBOCICLIB [Suspect]
     Active Substance: PALBOCICLIB
     Dosage: 125 MG, BD
     Route: 048
  4. CALSORIN [Concomitant]
     Dosage: UNK
     Dates: start: 202007

REACTIONS (15)
  - Haemoglobin decreased [Recovering/Resolving]
  - Platelet count decreased [Unknown]
  - Osteosclerosis [Unknown]
  - Neoplasm progression [Unknown]
  - Blood thyroid stimulating hormone increased [Unknown]
  - Crystalluria [Unknown]
  - Osteopenia [Unknown]
  - Splenomegaly [Unknown]
  - Weight decreased [Unknown]
  - White blood cell count decreased [Unknown]
  - Back pain [Unknown]
  - Asthenia [Unknown]
  - Dizziness [Unknown]
  - Nipple disorder [Unknown]
  - Off label use [Unknown]

NARRATIVE: CASE EVENT DATE: 20200727
